FAERS Safety Report 19889518 (Version 1)
Quarter: 2021Q3

REPORT INFORMATION
  Report Type: Report from Study
  Country: GB (occurrence: GB)
  Receive Date: 20210928
  Receipt Date: 20210928
  Transmission Date: 20211014
  Serious: Yes (Hospitalization)
  Sender: FDA-Public Use
  Company Number: GB-EISAI MEDICAL RESEARCH-EC-2021-100342

PATIENT
  Age: 72 Year
  Sex: Female

DRUGS (7)
  1. LAXIDO [Concomitant]
     Active Substance: POLYETHYLENE GLYCOL 3350\POTASSIUM CHLORIDE\SODIUM BICARBONATE\SODIUM CHLORIDE
     Dates: start: 20210821
  2. CHLORPHENIRAMIN [Concomitant]
     Active Substance: CHLORPHENIRAMINE MALEATE
     Dates: start: 20210821
  3. PEMBROLIZUMAB. [Suspect]
     Active Substance: PEMBROLIZUMAB
     Indication: COLORECTAL CANCER
     Route: 041
  4. TRIFLURIDINE (+) TIPIRACIL HYDROCHLORIDE [Suspect]
     Active Substance: TIPIRACIL HYDROCHLORIDE\TRIFLURIDINE
     Indication: COLORECTAL CANCER
     Dosage: BID ON DAYS 1?5 AND DAYS 8?12
  5. REGORAFENIB. [Suspect]
     Active Substance: REGORAFENIB
     Indication: COLORECTAL CANCER
     Dosage: QD ON DAYS 1?21,NO DOSE DAYS 22?28
     Route: 048
  6. OXYCODON [Concomitant]
     Active Substance: OXYCODONE
     Dates: start: 20210831
  7. LENVATINIB [Suspect]
     Active Substance: LENVATINIB
     Indication: COLORECTAL CANCER
     Route: 048

REACTIONS (1)
  - Intestinal obstruction [Not Recovered/Not Resolved]

NARRATIVE: CASE EVENT DATE: 20210921
